FAERS Safety Report 5424883-1 (Version None)
Quarter: 2007Q3

REPORT INFORMATION
  Report Type: 
  Country: None (occurrence: None)
  Receive Date: 20070824
  Receipt Date: 20070814
  Transmission Date: 20080115
  Serious: Yes (Hospitalization, Disabling)
  Sender: FDA-Public Use
  Company Number: US-AVENTIS-200712727US

PATIENT
  Sex: Male

DRUGS (12)
  1. KETEK [Suspect]
     Indication: BRONCHITIS
     Dosage: DOSE: UNK
     Route: 048
     Dates: start: 20050301
  2. PROZAC [Concomitant]
  3. LITHIUM CARBONATE [Concomitant]
     Dosage: DOSE: 300 MG 3-4 QD
  4. NEURONTIN [Concomitant]
  5. LAMICTAL [Concomitant]
  6. PROVIGIL [Concomitant]
     Dosage: DOSE: UNK
  7. ALBUTEROL [Concomitant]
     Indication: BRONCHITIS
     Dosage: DOSE: PUFFS
     Route: 055
  8. MEDROL [Concomitant]
     Dosage: DOSE: UNK
  9. PRILOSEC                           /00661201/ [Concomitant]
     Dosage: DOSE: UNK
  10. PROMETHAZINE W/ CODEINE [Concomitant]
     Dosage: DOSE QUANTITY: 1; DOSE UNIT: TEASPOON
  11. LOTENSIN                           /00909102/ [Concomitant]
     Dosage: DOSE: 1O
  12. PREDNISONE TAB [Concomitant]
     Indication: BRONCHITIS
     Dosage: DOSE: UNK
     Dates: start: 20070301

REACTIONS (22)
  - ABDOMINAL DISCOMFORT [None]
  - ABDOMINAL DISTENSION [None]
  - ABDOMINAL PAIN [None]
  - ANOREXIA [None]
  - ASCITES [None]
  - ASTHENIA [None]
  - CONSTIPATION [None]
  - COUGH [None]
  - FATIGUE [None]
  - HEPATIC ENZYME INCREASED [None]
  - HEPATITIS [None]
  - HYPERHIDROSIS [None]
  - JAUNDICE [None]
  - LIVER DISORDER [None]
  - NAUSEA [None]
  - OEDEMA PERIPHERAL [None]
  - PARAESTHESIA [None]
  - PYREXIA [None]
  - SKIN DISORDER [None]
  - SMALL INTESTINAL OBSTRUCTION [None]
  - VISION BLURRED [None]
  - VOMITING [None]
